FAERS Safety Report 12984138 (Version 1)
Quarter: 2016Q4

REPORT INFORMATION
  Report Type: Spontaneous
  Country: US (occurrence: US)
  Receive Date: 20161129
  Receipt Date: 20161129
  Transmission Date: 20170207
  Serious: No
  Sender: FDA-Public Use
  Company Number: US-SA-2016SA081878

PATIENT
  Age: 39 Year
  Sex: Male

DRUGS (1)
  1. RENAGEL [Suspect]
     Active Substance: SEVELAMER HYDROCHLORIDE
     Indication: ACUTE KIDNEY INJURY
     Route: 065
     Dates: start: 20160304

REACTIONS (2)
  - Acne [Not Recovered/Not Resolved]
  - Pruritus [Not Recovered/Not Resolved]

NARRATIVE: CASE EVENT DATE: 2016
